FAERS Safety Report 24941057 (Version 3)
Quarter: 2025Q1

REPORT INFORMATION
  Report Type: Spontaneous
  Country: PT (occurrence: PT)
  Receive Date: 20250207
  Receipt Date: 20250226
  Transmission Date: 20250409
  Serious: Yes (Other)
  Sender: AUROBINDO
  Company Number: PT-MLMSERVICE-20250120-PI352481-00338-1

PATIENT
  Age: 50 Year
  Sex: Female

DRUGS (3)
  1. ZOLPIDEM [Suspect]
     Active Substance: ZOLPIDEM TARTRATE
     Indication: Product used for unknown indication
     Route: 065
  2. VENLAFAXINE [Concomitant]
     Active Substance: VENLAFAXINE HYDROCHLORIDE
     Indication: Psychotherapy
     Route: 065
  3. TRAZODONE [Concomitant]
     Active Substance: TRAZODONE HYDROCHLORIDE
     Indication: Psychotherapy
     Route: 065

REACTIONS (5)
  - Amnesia [Unknown]
  - Drug abuse [Unknown]
  - Tremor [Unknown]
  - Drug dependence [Unknown]
  - Withdrawal syndrome [Unknown]
